FAERS Safety Report 8974498 (Version 3)
Quarter: 2013Q2

REPORT INFORMATION
  Report Type: Spontaneous
  Country: JP (occurrence: JP)
  Receive Date: 20121219
  Receipt Date: 20130430
  Transmission Date: 20140414
  Serious: Yes (Other)
  Sender: FDA-Public Use
  Company Number: JP-009507513-1210JPN012021

PATIENT
  Age: 23 Year
  Sex: Female
  Weight: 50 kg

DRUGS (4)
  1. MARVELON 28 [Suspect]
     Indication: CONTRACEPTION
     Dosage: 1 DF, QD
     Route: 048
     Dates: start: 20120418, end: 20120711
  2. MARVELON [Suspect]
     Indication: CONTRACEPTION
     Dosage: UNK
     Route: 048
  3. GOREI-SAN [Suspect]
     Indication: OEDEMA
     Dosage: UNK
     Route: 048
     Dates: start: 20120821
  4. SAIREI-TO [Suspect]
     Indication: OEDEMA
     Dosage: UNK
     Route: 048
     Dates: start: 20120821

REACTIONS (3)
  - Phlebitis superficial [Not Recovered/Not Resolved]
  - Pyrexia [Unknown]
  - Urticaria [Recovered/Resolved]
